FAERS Safety Report 9296263 (Version 1)
Quarter: 2013Q2

REPORT INFORMATION
  Report Type: Spontaneous
  Country: BR (occurrence: BR)
  Receive Date: 20130517
  Receipt Date: 20130517
  Transmission Date: 20140414
  Serious: Yes (Hospitalization)
  Sender: FDA-Public Use
  Company Number: BR-BRISTOL-MYERS SQUIBB COMPANY-18890491

PATIENT
  Age: 77 Year
  Sex: Female

DRUGS (5)
  1. ONGLYZA TABS 5 MG [Suspect]
     Indication: DIABETES MELLITUS
     Route: 048
  2. TENADREN [Concomitant]
     Indication: BLOOD PRESSURE
  3. CARDIZEM [Concomitant]
     Indication: CARDIAC DISORDER
  4. GLIFAGE [Concomitant]
  5. DIAMICRON [Concomitant]

REACTIONS (1)
  - Visual impairment [Recovered/Resolved]
